FAERS Safety Report 11906727 (Version 1)
Quarter: 2016Q1

REPORT INFORMATION
  Report Type: Spontaneous
  Country: CA (occurrence: None)
  Receive Date: 20160108
  Receipt Date: 20160108
  Transmission Date: 20160526
  Serious: Yes (Hospitalization)
  Sender: FDA-Public Use
  Company Number: None

PATIENT
  Age: 44 Year
  Sex: Male
  Weight: 113 kg

DRUGS (1)
  1. CISPLATIN. [Suspect]
     Active Substance: CISPLATIN
     Dates: end: 20151223

REACTIONS (8)
  - Heart rate increased [None]
  - Pyrexia [None]
  - Superinfection [None]
  - Vomiting [None]
  - Odynophagia [None]
  - Oropharyngeal pain [None]
  - Oesophagitis [None]
  - Dysphagia [None]

NARRATIVE: CASE EVENT DATE: 20151229
